FAERS Safety Report 23683373 (Version 1)
Quarter: 2024Q1

REPORT INFORMATION
  Report Type: Spontaneous
  Country: ES (occurrence: ES)
  Receive Date: 20240328
  Receipt Date: 20240328
  Transmission Date: 20240409
  Serious: Yes (Life-Threatening, Other)
  Sender: FDA-Public Use
  Company Number: ES-FreseniusKabi-FK202405026

PATIENT
  Age: 40 Year
  Sex: Female
  Weight: 72 kg

DRUGS (2)
  1. PACLITAXEL [Suspect]
     Active Substance: PACLITAXEL
     Indication: Ovarian cancer
     Dosage: ROUTE OF ADMINISTRATION: INTRAVENOUS (NOT SPECIFIED OTHERWISE)
     Dates: start: 20240318, end: 20240318
  2. PACLITAXEL [Suspect]
     Active Substance: PACLITAXEL
     Dosage: ROUTE OF ADMINISTRATION: INTRAVENOUS (NOT SPECIFIED OTHERWISE)
     Dates: start: 20240318, end: 20240318

REACTIONS (1)
  - Anaphylactic shock [Recovered/Resolved]

NARRATIVE: CASE EVENT DATE: 20240318
